FAERS Safety Report 10450260 (Version 1)
Quarter: 2014Q3

REPORT INFORMATION
  Report Type: Spontaneous
  Country: US (occurrence: None)
  Receive Date: 20140911
  Receipt Date: 20140911
  Transmission Date: 20150326
  Serious: Yes (Other)
  Sender: FDA-Public Use
  Company Number: None

PATIENT
  Age: 60 Year
  Sex: Female

DRUGS (1)
  1. VIBATIV [Suspect]
     Active Substance: TELAVANCIN HYDROCHLORIDE
     Indication: ARTHRITIS BACTERIAL
     Dosage: 950MG, Q24H, INTRAVENOUS
     Route: 042
     Dates: start: 20140805, end: 20140808

REACTIONS (2)
  - Dyspepsia [None]
  - Chills [None]

NARRATIVE: CASE EVENT DATE: 20140808
